FAERS Safety Report 4782589-6 (Version None)
Quarter: 2005Q3

REPORT INFORMATION
  Report Type: 
  Country: None (occurrence: None)
  Receive Date: 20050929
  Receipt Date: 20050412
  Transmission Date: 20060218
  Serious: No
  Sender: FDA-Public Use
  Company Number: 402079

PATIENT
  Age: 64 Year
  Sex: Female

DRUGS (3)
  1. COREG [Suspect]
     Route: 048
  2. NATRECOR [Concomitant]
  3. LASIX [Concomitant]

REACTIONS (3)
  - ALOPECIA [None]
  - DYSPNOEA [None]
  - EYE PAIN [None]
